FAERS Safety Report 6604097-X (Version None)
Quarter: 2010Q1

REPORT INFORMATION
  Report Type: 
  Country: None (occurrence: None)
  Receive Date: 20100226
  Receipt Date: 20090520
  Transmission Date: 20100710
  Serious: No
  Sender: FDA-Public Use
  Company Number: A0785315A

PATIENT
  Age: 32 Year
  Sex: Male

DRUGS (4)
  1. LAMOTRIGINE [Suspect]
     Dosage: 100MG TWICE PER DAY
     Route: 048
     Dates: start: 20090101
  2. TOPAMAX [Concomitant]
  3. TEGRETOL [Concomitant]
  4. CLONAZEPAM [Concomitant]

REACTIONS (6)
  - DERMATITIS CONTACT [None]
  - DRUG INEFFECTIVE [None]
  - EXCORIATION [None]
  - ILL-DEFINED DISORDER [None]
  - RASH ERYTHEMATOUS [None]
  - TINEA INFECTION [None]
